FAERS Safety Report 8819364 (Version 1)
Quarter: 2012Q4

REPORT INFORMATION
  Report Type: Spontaneous
  Country: NL (occurrence: None)
  Receive Date: 20121003
  Receipt Date: 20121003
  Transmission Date: 20130627
  Serious: Yes (Other)
  Sender: FDA-Public Use
  Company Number: FK201202864

PATIENT
  Age: 58 Year
  Sex: Female

DRUGS (7)
  1. IDARUBICIN HYDROCHLORIDE [Suspect]
  2. CYTARABINE [Suspect]
  3. CLOFARABINE [Suspect]
  4. CIPROFLOXACIN (CIPROFLOXACIN) [Concomitant]
  5. VALACICLOVIR (VALACICLOVIR) [Concomitant]
  6. AMPHOTERICIN B (AMPHOTERICIN B) [Concomitant]
  7. TRIMETHOPRIM SULFAMETHOXAZOLE [Suspect]

REACTIONS (2)
  - Neutropenic colitis [None]
  - Fungaemia [None]
